FAERS Safety Report 16635350 (Version 1)
Quarter: 2019Q3

REPORT INFORMATION
  Report Type: Spontaneous
  Country: US (occurrence: US)
  Receive Date: 20190726
  Receipt Date: 20190726
  Transmission Date: 20191004
  Serious: No
  Sender: FDA-Public Use
  Company Number: US-009507513-1907USA003274

PATIENT
  Age: 13 Year
  Sex: Female

DRUGS (3)
  1. DEPLIN [Concomitant]
     Active Substance: LEVOMEFOLATE CALCIUM
     Dosage: TITRATED TO 15 MG
  2. DEPLIN [Concomitant]
     Active Substance: LEVOMEFOLATE CALCIUM
     Indication: PSYCHIATRIC SYMPTOM
     Dosage: 2 MILLIGRAM, QD
  3. REMERON [Suspect]
     Active Substance: MIRTAZAPINE
     Indication: PSYCHIATRIC SYMPTOM
     Route: 048

REACTIONS (1)
  - Therapeutic product effect incomplete [Unknown]
